FAERS Safety Report 22296777 (Version 1)
Quarter: 2023Q2

REPORT INFORMATION
  Report Type: Spontaneous
  Country: PH (occurrence: PH)
  Receive Date: 20230509
  Receipt Date: 20230509
  Transmission Date: 20230722
  Serious: Yes (Other)
  Sender: FDA-Public Use
  Company Number: PH-STERISCIENCE B.V.-2023-ST-001277

PATIENT
  Sex: Female
  Weight: 1.685 kg

DRUGS (5)
  1. BUPIVACAINE [Suspect]
     Active Substance: BUPIVACAINE
     Indication: Product used for unknown indication
     Dosage: THE PATIENT^S MOTHER^S DOSE WAS 1.5 MILLILITER, AFTER THE FIRST PUNCTURE, GIVEN AFTER ANOTHER PUNCTU
     Route: 064
  2. BUPIVACAINE [Suspect]
     Active Substance: BUPIVACAINE
     Dosage: THE PATIENT^S MOTHER^S WAS GIVEN AFTER ANOTHER PUNCTURE WAS PERFORMED
     Route: 064
  3. NIFEDIPINE [Suspect]
     Active Substance: NIFEDIPINE
     Indication: Product used for unknown indication
     Dosage: THE PATIENT^S MOTHER^S DOSE WAS 30 MILLIGRAM, LOADING DOSE
     Route: 064
  4. NIFEDIPINE [Suspect]
     Active Substance: NIFEDIPINE
     Dosage: THE PATIENT^S MOTHER^S DOSE WAS 10 MILLIGRAM, EVERY 4 HOURS
     Route: 064
  5. DEXAMETHASONE [Suspect]
     Active Substance: DEXAMETHASONE
     Indication: Product used for unknown indication
     Dosage: THE PATIENT^S MOTHER^S DOSE WAS 6 MILLIGRAM, 12 HOURS, FOR FOUR DOSES
     Route: 064

REACTIONS (3)
  - Premature baby [Unknown]
  - Low birth weight baby [Unknown]
  - Foetal exposure during delivery [Unknown]
